FAERS Safety Report 8997048 (Version 3)
Quarter: 2013Q2

REPORT INFORMATION
  Report Type: Spontaneous
  Country: US (occurrence: US)
  Receive Date: 20130104
  Receipt Date: 20130620
  Transmission Date: 20140414
  Serious: No
  Sender: FDA-Public Use
  Company Number: US-009507513-1301USA000385

PATIENT
  Sex: Female
  Weight: 89.8 kg

DRUGS (3)
  1. NUVARING [Suspect]
     Indication: CONTRACEPTION
     Dosage: UNK
     Route: 067
     Dates: start: 20100722, end: 201105
  2. NUVARING [Suspect]
     Dosage: UNK
     Route: 067
     Dates: start: 20120929
  3. VALTREX [Concomitant]
     Indication: GENITAL HERPES
     Dosage: UNK, PRN
     Route: 048
     Dates: start: 2000

REACTIONS (3)
  - Deep vein thrombosis [Unknown]
  - Thrombophlebitis superficial [Unknown]
  - Menstruation irregular [Unknown]
